FAERS Safety Report 9304240 (Version 1)
Quarter: 2013Q2

REPORT INFORMATION
  Report Type: Spontaneous
  Country: US (occurrence: US)
  Receive Date: 20130522
  Receipt Date: 20130522
  Transmission Date: 20140414
  Serious: Yes (Other)
  Sender: FDA-Public Use
  Company Number: US-PFIZER INC-2013155893

PATIENT
  Age: 56 Year
  Sex: Female
  Weight: 40.36 kg

DRUGS (3)
  1. LYRICA [Suspect]
     Indication: FIBROMYALGIA
     Dosage: 150 MG, 1X/DAY
     Route: 048
     Dates: start: 201303, end: 20130411
  2. TOPAMAX [Concomitant]
     Indication: EPILEPSY
     Dosage: UNK
  3. KLONOPIN [Concomitant]
     Dosage: UNK

REACTIONS (4)
  - Sciatica [Unknown]
  - Arthralgia [Unknown]
  - Musculoskeletal pain [Unknown]
  - Drug withdrawal syndrome [Unknown]
